FAERS Safety Report 9413171 (Version 2)
Quarter: 2013Q3

REPORT INFORMATION
  Report Type: Report from Study
  Country: AR (occurrence: AR)
  Receive Date: 20130722
  Receipt Date: 20130828
  Transmission Date: 20140515
  Serious: Yes (Other)
  Sender: FDA-Public Use
  Company Number: PHHY2013AR077717

PATIENT
  Sex: Female

DRUGS (2)
  1. DIOVAN D [Suspect]
     Indication: HYPERTENSION
     Dosage: 1 DF (160/12.5 MG), A DAY
     Route: 048
  2. DIOVAN D [Suspect]
     Dosage: 0.5 DF (160/12.5 MG), DAILY

REACTIONS (8)
  - Bone disorder [Recovering/Resolving]
  - Arthropathy [Recovering/Resolving]
  - Ligament disorder [Recovering/Resolving]
  - Joint effusion [Recovering/Resolving]
  - Gait disturbance [Recovering/Resolving]
  - Pain [Recovering/Resolving]
  - Blood pressure decreased [Recovering/Resolving]
  - Wrong technique in drug usage process [Recovering/Resolving]
